FAERS Safety Report 11145180 (Version 10)
Quarter: 2018Q1

REPORT INFORMATION
  Report Type: Report from Study
  Country: JP (occurrence: JP)
  Receive Date: 20150528
  Receipt Date: 20180326
  Transmission Date: 20180508
  Serious: Yes (Hospitalization)
  Sender: FDA-Public Use
  Company Number: JP-OTSUKA-JP-2014-19678

PATIENT
  Age: 36 Year
  Sex: Male
  Weight: 75 kg

DRUGS (30)
  1. TOLVAPTAN [Suspect]
     Active Substance: TOLVAPTAN
     Dosage: 45 MG, QD, MORNING
     Route: 048
     Dates: start: 20140619, end: 20140625
  2. TOLVAPTAN [Suspect]
     Active Substance: TOLVAPTAN
     Dosage: 15 MG, QD, EVENING
     Route: 048
     Dates: start: 20140912, end: 20141127
  3. TOLVAPTAN [Suspect]
     Active Substance: TOLVAPTAN
     Dosage: 22.5 MG, DAILY DOSE (DIVIDED 2 DOSES)
     Route: 048
     Dates: start: 20150319, end: 20150917
  4. TOLVAPTAN [Suspect]
     Active Substance: TOLVAPTAN
     Dosage: 30 MG, QD, MORNING
     Route: 048
     Dates: start: 20141128, end: 20150109
  5. AZILVA [Concomitant]
     Active Substance: AZILSARTAN KAMEDOXOMIL
     Indication: PRODUCT USED FOR UNKNOWN INDICATION
     Dosage: 10 MG, QD
     Route: 048
     Dates: end: 20151020
  6. TOLVAPTAN [Suspect]
     Active Substance: TOLVAPTAN
     Indication: CONGENITAL CYSTIC KIDNEY DISEASE
     Dosage: 45 MG, QD, MORNING
     Route: 048
     Dates: start: 20140725, end: 20140911
  7. TOLVAPTAN [Suspect]
     Active Substance: TOLVAPTAN
     Dosage: 30 MG, DAILY DOSE (DIVIDED 2 DOSES)
     Route: 048
     Dates: start: 20150918, end: 20151019
  8. TOLVAPTAN [Suspect]
     Active Substance: TOLVAPTAN
     Dosage: 22.5 MG, DAILY DOSE (DIVIDED 2 DOSES)
     Route: 048
     Dates: start: 20151126, end: 20160428
  9. ZITHROMAC [Concomitant]
     Active Substance: AZITHROMYCIN DIHYDRATE
     Indication: PRODUCT USED FOR UNKNOWN INDICATION
     Dosage: 2 G, QD
     Route: 065
     Dates: start: 20150624
  10. TOLVAPTAN [Suspect]
     Active Substance: TOLVAPTAN
     Dosage: UNK
  11. RISPERDAL [Suspect]
     Active Substance: RISPERIDONE
     Indication: PRODUCT USED FOR UNKNOWN INDICATION
     Dosage: UNK
     Route: 048
     Dates: start: 20150802, end: 20150802
  12. ZITHROMAC [Concomitant]
     Active Substance: AZITHROMYCIN DIHYDRATE
     Indication: PRODUCT USED FOR UNKNOWN INDICATION
     Dosage: 2 G, QD
     Route: 048
     Dates: start: 20150420, end: 20150420
  13. BLOPRESS [Concomitant]
     Active Substance: CANDESARTAN CILEXETIL
     Indication: PRODUCT USED FOR UNKNOWN INDICATION
     Dosage: 4 MG, QD
     Route: 048
     Dates: end: 20150723
  14. CRESTOR [Concomitant]
     Active Substance: ROSUVASTATIN CALCIUM
     Indication: PRODUCT USED FOR UNKNOWN INDICATION
     Dosage: 1.25 MG, QD
     Route: 048
     Dates: start: 20150306
  15. ROHYPNOL [Suspect]
     Active Substance: FLUNITRAZEPAM
     Dosage: 1 MG, QD
     Route: 048
     Dates: start: 20150803
  16. REBAMIPIDE [Concomitant]
     Active Substance: REBAMIPIDE
     Indication: PRODUCT USED FOR UNKNOWN INDICATION
     Dosage: 300 MG, QD
     Route: 048
  17. TOLVAPTAN [Suspect]
     Active Substance: TOLVAPTAN
     Dosage: 15 MG, QD, EVENING
     Route: 048
     Dates: start: 20140619, end: 20140625
  18. TOLVAPTAN [Suspect]
     Active Substance: TOLVAPTAN
     Dosage: 30 MG, QD, EVENING
     Route: 048
     Dates: start: 20140626, end: 20140724
  19. TOLVAPTAN [Suspect]
     Active Substance: TOLVAPTAN
     Dosage: 45 MG, QD, MORNING
     Route: 048
     Dates: start: 20140912, end: 20141127
  20. ZITHROMAC [Concomitant]
     Active Substance: AZITHROMYCIN DIHYDRATE
     Dosage: 2 G, QD
     Route: 048
     Dates: start: 20150802, end: 20150802
  21. GASTER [Concomitant]
     Active Substance: FAMOTIDINE
     Indication: PRODUCT USED FOR UNKNOWN INDICATION
     Dosage: 20 MG, QD
     Route: 048
  22. LOTRIGA [Concomitant]
     Active Substance: OMEGA-3-ACID ETHYL ESTERS
     Indication: PRODUCT USED FOR UNKNOWN INDICATION
     Dosage: 2 G, QD
     Route: 048
     Dates: start: 20150306, end: 20150430
  23. TOLVAPTAN [Suspect]
     Active Substance: TOLVAPTAN
     Dosage: 15 MG, QD, EVENING
     Route: 048
     Dates: start: 20140725, end: 20140911
  24. ROHYPNOL [Suspect]
     Active Substance: FLUNITRAZEPAM
     Indication: PRODUCT USED FOR UNKNOWN INDICATION
     Dosage: 1 MG, QD
     Route: 048
     Dates: end: 20150801
  25. ROHYPNOL [Suspect]
     Active Substance: FLUNITRAZEPAM
     Dosage: 2 MG, QD
     Route: 048
     Dates: start: 20150802, end: 20150802
  26. MIYA-BM [Concomitant]
     Active Substance: CLOSTRIDIUM BUTYRICUM SPORES STRAIN M-55
     Indication: PRODUCT USED FOR UNKNOWN INDICATION
     Dosage: 3 TABLET, QD
     Route: 048
  27. TOLVAPTAN [Suspect]
     Active Substance: TOLVAPTAN
     Dosage: 60 MG, QD, MORNING
     Route: 048
     Dates: start: 20140626, end: 20140724
  28. TOLVAPTAN [Suspect]
     Active Substance: TOLVAPTAN
     Dosage: 15 MG, QD, EVENING
     Route: 048
     Dates: start: 20141128, end: 20150109
  29. TOLVAPTAN [Suspect]
     Active Substance: TOLVAPTAN
     Dosage: 30 MG, DAILY DOSE (DIVIDED 2 DOSES)
     Route: 048
     Dates: start: 20160429, end: 20180228
  30. ZETIA [Concomitant]
     Active Substance: EZETIMIBE
     Indication: PRODUCT USED FOR UNKNOWN INDICATION
     Dosage: 10 MG, QD
     Route: 048
     Dates: start: 20150219

REACTIONS (9)
  - Cholangitis acute [Recovering/Resolving]
  - Haematuria [Recovered/Resolved]
  - Renal impairment [Recovered/Resolved]
  - Altered state of consciousness [Recovering/Resolving]
  - Hepatic function abnormal [Recovered/Resolved]
  - Enterocolitis [Recovering/Resolving]
  - Abdominal pain [Recovered/Resolved]
  - Pyrexia [Recovered/Resolved]
  - Pyrexia [Recovered/Resolved]

NARRATIVE: CASE EVENT DATE: 20140911
